FAERS Safety Report 6558048-7 (Version None)
Quarter: 2010Q1

REPORT INFORMATION
  Report Type: 
  Country: None (occurrence: None)
  Receive Date: 20100126
  Receipt Date: 20100118
  Transmission Date: 20100710
  Serious: Yes (Hospitalization)
  Sender: FDA-Public Use
  Company Number: 002897

PATIENT
  Sex: Female
  Weight: 93.8946 kg

DRUGS (11)
  1. CIMZIA [Suspect]
     Indication: CROHN'S DISEASE
     Dosage: (SUBCUTANEOUS)
     Route: 058
     Dates: start: 20090520, end: 20090901
  2. COUMADIN [Concomitant]
  3. LASIX [Concomitant]
  4. FLAGYL [Concomitant]
  5. CIPROFLOXACIN [Concomitant]
  6. AMITRIPTYLINE [Concomitant]
  7. POTASSIUM CHLORIDE [Concomitant]
  8. PERCOCET [Concomitant]
  9. FENTANYL [Concomitant]
  10. VITAMIN B-12 [Concomitant]
  11. NEXIUM [Concomitant]

REACTIONS (2)
  - ANAL FISTULA [None]
  - THROMBOSIS [None]
